FAERS Safety Report 16400740 (Version 1)
Quarter: 2019Q2

REPORT INFORMATION
  Report Type: Spontaneous
  Country: US (occurrence: US)
  Receive Date: 20190606
  Receipt Date: 20190606
  Transmission Date: 20190711
  Serious: No
  Sender: FDA-Public Use
  Company Number: US-PERNIX THERAPEUTICS-US-2018PER001754

PATIENT

DRUGS (1)
  1. SUMATRIPTAN SUCCINATE, NAPROXEN SODIUM [Suspect]
     Active Substance: NAPROXEN SODIUM\SUMATRIPTAN SUCCINATE
     Indication: HEADACHE
     Dosage: 85-500 MG, 1 TABLET BY MOUTH ONSET OF HEADACHE
     Route: 048
     Dates: start: 20181018

REACTIONS (3)
  - Vomiting [Unknown]
  - Headache [Unknown]
  - Nausea [Unknown]

NARRATIVE: CASE EVENT DATE: 20181018
